FAERS Safety Report 8381088-2 (Version None)
Quarter: 2012Q2

REPORT INFORMATION
  Report Type: 
  Country: None (occurrence: None)
  Receive Date: 20120507
  Receipt Date: 20120501
  Transmission Date: 20120825
  Serious: Yes (Hospitalization)
  Sender: FDA-Public Use
  Company Number: 2012032219

PATIENT
  Age: 17 Year
  Sex: Female

DRUGS (1)
  1. ANTIHEMOPHILIC FACTOR (HUMAN) [Suspect]
     Indication: VON WILLEBRAND'S DISEASE
     Dosage: 2000 IU PRN INTRAVENOUS (NOT OTHERWISE SPECIFIED)
     Route: 042

REACTIONS (3)
  - NAUSEA [None]
  - VERTIGO [None]
  - PERIPHERAL VASCULAR DISORDER [None]
